FAERS Safety Report 17880509 (Version 1)
Quarter: 2020Q2

REPORT INFORMATION
  Report Type: Spontaneous
  Country: SE (occurrence: SE)
  Receive Date: 20200610
  Receipt Date: 20200610
  Transmission Date: 20200714
  Serious: Yes (Other)
  Sender: FDA-Public Use
  Company Number: SE-JNJFOC-20200608836

PATIENT
  Age: 21 Year
  Sex: Male

DRUGS (1)
  1. TRAMADOL HYDROCHLORIDE. [Suspect]
     Active Substance: TRAMADOL HYDROCHLORIDE
     Indication: PRODUCT USED FOR UNKNOWN INDICATION
     Dosage: UNK
     Route: 065

REACTIONS (50)
  - Hyperacusis [Not Recovered/Not Resolved]
  - Gastric ulcer [Unknown]
  - Depression [Unknown]
  - Aggression [Unknown]
  - Influenza like illness [Unknown]
  - Headache [Unknown]
  - Heart rate decreased [Unknown]
  - Mental impairment [Unknown]
  - Abdominal pain upper [Unknown]
  - Hyperaesthesia [Unknown]
  - Hypoglycaemia [Unknown]
  - Dry mouth [Unknown]
  - Shock [Unknown]
  - Periodontitis [Unknown]
  - Photophobia [Unknown]
  - Weight fluctuation [Unknown]
  - Euphoric mood [Unknown]
  - Fatigue [Unknown]
  - Insomnia [Unknown]
  - Withdrawal syndrome [Unknown]
  - Paraesthesia [Unknown]
  - Coordination abnormal [Unknown]
  - Dizziness [Unknown]
  - Syncope [Unknown]
  - Orthostatic hypotension [Unknown]
  - Somnolence [Unknown]
  - Vision blurred [Unknown]
  - Dysgeusia [Unknown]
  - Irritability [Unknown]
  - Pyrexia [Unknown]
  - Throat tightness [Unknown]
  - Constipation [Unknown]
  - Memory impairment [Unknown]
  - Muscle twitching [Unknown]
  - Dependence [Unknown]
  - Muscle spasms [Unknown]
  - Neuralgia [Unknown]
  - Anxiety [Unknown]
  - Disturbance in attention [Unknown]
  - Vomiting [Unknown]
  - Erectile dysfunction [Unknown]
  - Decreased immune responsiveness [Unknown]
  - Feeling hot [Unknown]
  - Parosmia [Unknown]
  - Appetite disorder [Unknown]
  - Burning sensation [Unknown]
  - Confusional state [Unknown]
  - Bone pain [Unknown]
  - Hyperhidrosis [Unknown]
  - Nausea [Unknown]
